FAERS Safety Report 4710081-3 (Version None)
Quarter: 2005Q3

REPORT INFORMATION
  Report Type: 
  Country: None (occurrence: None)
  Receive Date: 20050709
  Receipt Date: 20040331
  Transmission Date: 20060218
  Serious: Yes (Death, Hospitalization, Other)
  Sender: FDA-Public Use
  Company Number: PHBS2004NO04368

PATIENT
  Age: 86 Year
  Sex: Female

DRUGS (3)
  1. ALKERAN [Concomitant]
     Indication: MULTIPLE MYELOMA
     Dosage: 16 MG IN 4 DAYS
     Route: 048
     Dates: start: 20021001, end: 20021201
  2. FORTECORTIN [Concomitant]
     Dosage: 16 MG IN 4 DAYS
     Route: 065
     Dates: start: 20021001, end: 20021201
  3. ZOMETA [Suspect]
     Indication: HYPERCALCAEMIA OF MALIGNANCY
     Dosage: 4 MG, QMO
     Route: 042
     Dates: start: 20021001, end: 20040301

REACTIONS (11)
  - ACTINOMYCOSIS [None]
  - ASEPTIC NECROSIS BONE [None]
  - BONE DISORDER [None]
  - BREATH ODOUR [None]
  - DEATH [None]
  - EATING DISORDER [None]
  - OPEN WOUND [None]
  - ORAL PAIN [None]
  - OSTEOMYELITIS [None]
  - OSTEONECROSIS [None]
  - STAPHYLOCOCCAL INFECTION [None]
